FAERS Safety Report 19513351 (Version 2)
Quarter: 2023Q4

REPORT INFORMATION
  Report Type: Spontaneous
  Country: US (occurrence: US)
  Receive Date: 20210709
  Receipt Date: 20231027
  Transmission Date: 20240110
  Serious: No
  Sender: FDA-Public Use
  Company Number: US-AVEO ONCOLOGY-2021-AVEO-US003300

PATIENT

DRUGS (9)
  1. FOTIVDA [Suspect]
     Active Substance: TIVOZANIB HYDROCHLORIDE
     Indication: Renal cell carcinoma
     Dosage: 1.34 MG
     Dates: start: 20210405
  2. AMLODIPINE [Concomitant]
     Active Substance: AMLODIPINE BESYLATE
  3. ATENOLOL [Concomitant]
     Active Substance: ATENOLOL
  4. CABOMETYX [Concomitant]
     Active Substance: CABOZANTINIB S-MALATE
  5. CIALIS [Concomitant]
     Active Substance: TADALAFIL
  6. LOMOTIL [Concomitant]
     Active Substance: ATROPINE SULFATE\DIPHENOXYLATE HYDROCHLORIDE
  7. SYNTHROID [Concomitant]
     Active Substance: LEVOTHYROXINE SODIUM
  8. TAMSULOSIN [Concomitant]
     Active Substance: TAMSULOSIN
  9. ZOCOR [Concomitant]
     Active Substance: SIMVASTATIN
     Dosage: UNK

REACTIONS (1)
  - Fatigue [Not Recovered/Not Resolved]

NARRATIVE: CASE EVENT DATE: 20210405
